FAERS Safety Report 9051329 (Version 1)
Quarter: 2013Q1

REPORT INFORMATION
  Report Type: Spontaneous
  Country: GB (occurrence: GB)
  Receive Date: 20130206
  Receipt Date: 20130206
  Transmission Date: 20140127
  Serious: Yes (Disabling)
  Sender: FDA-Public Use
  Company Number: GB-009507513-1301GBR013748

PATIENT
  Age: 73 Year
  Sex: Male
  Weight: 73 kg

DRUGS (5)
  1. SIMVASTATIN [Suspect]
     Dosage: 40 MG, UNK
     Dates: start: 20121101, end: 20121129
  2. ASPIRIN [Concomitant]
     Dosage: UNK
     Dates: start: 20121101, end: 20121129
  3. ATENOLOL [Concomitant]
     Dosage: UNK
     Dates: start: 20121101, end: 20121129
  4. ELANTAN [Concomitant]
     Dosage: UNK
     Dates: start: 20121101, end: 20121129
  5. METFORMIN [Concomitant]
     Dosage: UNK
     Dates: start: 20121101, end: 20121129

REACTIONS (2)
  - Muscle spasms [Not Recovered/Not Resolved]
  - Mobility decreased [Not Recovered/Not Resolved]
